FAERS Safety Report 20055305 (Version 4)
Quarter: 2022Q2

REPORT INFORMATION
  Report Type: Spontaneous
  Country: BR (occurrence: BR)
  Receive Date: 20211110
  Receipt Date: 20220517
  Transmission Date: 20220721
  Serious: Yes (Hospitalization)
  Sender: FDA-Public Use
  Company Number: BR-BIOMARINAP-BR-2021-139537

PATIENT
  Age: 35 Year
  Sex: Female
  Weight: 62 kg

DRUGS (3)
  1. LARONIDASE [Suspect]
     Active Substance: LARONIDASE
     Indication: Mucopolysaccharidosis I
     Dosage: 20 DF, Q15D
     Route: 042
     Dates: start: 20210826
  2. LARONIDASE [Suspect]
     Active Substance: LARONIDASE
     Dosage: 20 DF, Q15D
     Route: 042
     Dates: start: 20060101
  3. LARONIDASE [Suspect]
     Active Substance: LARONIDASE
     Dosage: UNK
     Route: 042
     Dates: end: 202112

REACTIONS (13)
  - Hospitalisation [Unknown]
  - Influenza [Unknown]
  - Oropharyngeal pain [Recovering/Resolving]
  - Inappropriate schedule of product administration [Unknown]
  - Rhinitis [Unknown]
  - Sinusitis [Unknown]
  - Exposure to SARS-CoV-2 [Recovering/Resolving]
  - Gastritis [Recovered/Resolved]
  - Dysmenorrhoea [Unknown]
  - Reflux gastritis [Unknown]
  - Anxiety [Unknown]
  - Panic attack [Unknown]
  - Influenza [Unknown]

NARRATIVE: CASE EVENT DATE: 20060101
